FAERS Safety Report 9413490 (Version 1)
Quarter: 2013Q3

REPORT INFORMATION
  Report Type: Spontaneous
  Country: US (occurrence: US)
  Receive Date: 20130722
  Receipt Date: 20130722
  Transmission Date: 20140515
  Serious: No
  Sender: FDA-Public Use
  Company Number: US-TEVA-420661USA

PATIENT
  Age: 43 Year
  Sex: Female
  Weight: 56.75 kg

DRUGS (5)
  1. PLAN B ONE-STEP [Suspect]
     Indication: POST COITAL CONTRACEPTION
     Dosage: 1.5 MILLIGRAM DAILY;
     Route: 048
     Dates: start: 201306
  2. PLAN B ONE-STEP [Suspect]
     Dosage: 1.5 MILLIGRAM DAILY;
     Route: 048
     Dates: start: 201306
  3. OMEPRAZOLE [Concomitant]
     Indication: DYSPEPSIA
  4. ACYCLOVIR [Concomitant]
     Indication: GENITAL HERPES
  5. METRONIDAZOLE [Concomitant]
     Indication: VAGINITIS BACTERIAL

REACTIONS (3)
  - Abdominal distension [Recovered/Resolved]
  - Breast discomfort [Recovered/Resolved]
  - Menstruation irregular [Recovered/Resolved]
